FAERS Safety Report 10969989 (Version 7)
Quarter: 2016Q2

REPORT INFORMATION
  Report Type: Report from Study
  Country: US (occurrence: US)
  Receive Date: 20150327
  Receipt Date: 20160516
  Transmission Date: 20160815
  Serious: Yes (Other)
  Sender: FDA-Public Use
  Company Number: ADR-2015-00579

PATIENT
  Age: 50 Year
  Sex: Male

DRUGS (25)
  1. BUPIVACAINE. [Suspect]
     Active Substance: BUPIVACAINE
     Dosage: 15.002 MG/DAY
     Route: 037
     Dates: start: 20140814
  2. FENTANYL. [Suspect]
     Active Substance: FENTANYL
     Dosage: 69.59 MCG/DAY
     Route: 037
     Dates: start: 20140826
  3. CLONIDINE. [Suspect]
     Active Substance: CLONIDINE
     Dosage: 200.02  MCG/DAY
     Route: 037
  4. COMPOUNDED BACLOFEN [Suspect]
     Active Substance: BACLOFEN
     Dosage: 160.02 MCG/DAY
     Route: 037
     Dates: start: 20150128
  5. COMPOUNDED BACLOFEN [Suspect]
     Active Substance: BACLOFEN
     Dosage: 250.03 MCG/DAY
     Route: 037
     Dates: start: 20140814
  6. CLONIDINE. [Suspect]
     Active Substance: CLONIDINE
     Dosage: 125.17 MCG/DAY
     Route: 037
     Dates: start: 20140826
  7. COMPOUNDED BACLOFEN [Suspect]
     Active Substance: BACLOFEN
     Dosage: 263.97 MCG/DAY
     Route: 037
     Dates: start: 20141230
  8. BUPIVACAINE. [Suspect]
     Active Substance: BUPIVACAINE
     Dosage: 19.798 MG/DAY
     Route: 037
     Dates: start: 20141230
  9. CLONIDINE. [Suspect]
     Active Substance: CLONIDINE
     Dosage: 131.99MCG/DAY
     Route: 037
     Dates: start: 20141230
  10. HYDROMORPHONE [Suspect]
     Active Substance: HYDROMORPHONE
     Route: 037
  11. COMPOUNDED BACLOFEN [Suspect]
     Active Substance: BACLOFEN
     Dosage: 200.02 MCG/DAY
     Route: 037
  12. FENTANYL. [Suspect]
     Active Substance: FENTANYL
     Dosage: 100.1 MCG/DAY
     Route: 037
     Dates: start: 20150128
  13. BUPIVACAINE. [Suspect]
     Active Substance: BUPIVACAINE
     Dosage: 12.001 MG/DAY
     Route: 037
     Dates: start: 20150128
  14. BUPIVACAINE. [Suspect]
     Active Substance: BUPIVACAINE
     Dosage: 23.098 MG/DAY
     Route: 037
     Dates: start: 20141117
  15. CLONIDINE. [Suspect]
     Active Substance: CLONIDINE
     Dosage: 160.02 MCG/DAY
     Route: 037
     Dates: start: 20150128
  16. COMPOUNDED BACLOFEN [Suspect]
     Active Substance: BACLOFEN
     Dosage: 307.97 MCG/DAY
     Route: 037
     Dates: start: 20141117
  17. CLONIDINE. [Suspect]
     Active Substance: CLONIDINE
     Dosage: 153.98 MCG/DAY
     Route: 037
     Dates: start: 20141117
  18. BUPIVACAINE. [Suspect]
     Active Substance: BUPIVACAINE
     Dosage: 15.002 MG/DAY
     Route: 037
  19. FENTANYL. [Suspect]
     Active Substance: FENTANYL
     Dosage: 50.01 MCG/DAY
     Route: 037
     Dates: start: 20140814
  20. FENTANYL. [Suspect]
     Active Substance: FENTANYL
     Dosage: 125.01 MCG/DAY
     Route: 037
  21. CLONIDINE. [Suspect]
     Active Substance: CLONIDINE
     Dosage: 100.01 MCG/DAY
     Route: 037
     Dates: start: 20140814
  22. COMPOUNDED BACLOFEN [Suspect]
     Active Substance: BACLOFEN
     Dosage: 250.35 MCG/DAY
     Route: 037
     Dates: start: 20140826
  23. BUPIVACAINE. [Suspect]
     Active Substance: BUPIVACAINE
     Dosage: 18.776 MG/DAY
     Route: 037
     Dates: start: 20140826
  24. FENTANYL. [Suspect]
     Active Substance: FENTANYL
     Dosage: 76.99 MCG/DAY
     Route: 037
     Dates: start: 20141117
  25. FENTANYL. [Suspect]
     Active Substance: FENTANYL
     Dosage: 65.99 MCG/DAY
     Route: 037
     Dates: start: 20141230

REACTIONS (11)
  - Anxiety [Recovered/Resolved]
  - Muscular weakness [Unknown]
  - Balance disorder [Recovered/Resolved]
  - Confusional state [Recovered/Resolved]
  - Intervertebral disc protrusion [Unknown]
  - Medical device site pain [Recovered/Resolved]
  - Infusion site mass [Unknown]
  - Nuclear magnetic resonance imaging abnormal [Unknown]
  - Hypoaesthesia [Recovered/Resolved]
  - Chills [Recovered/Resolved]
  - Dizziness [Recovered/Resolved]

NARRATIVE: CASE EVENT DATE: 20140826
